FAERS Safety Report 20995711 (Version 1)
Quarter: 2022Q2

REPORT INFORMATION
  Report Type: Spontaneous
  Country: US (occurrence: US)
  Receive Date: 20220623
  Receipt Date: 20220623
  Transmission Date: 20220721
  Serious: No
  Sender: FDA-Public Use
  Company Number: US-PURDUE PHARMA-USA-2021-0289350

PATIENT

DRUGS (1)
  1. OXYCODONE HYDROCHLORIDE [Suspect]
     Active Substance: OXYCODONE HYDROCHLORIDE
     Indication: Pain
     Dosage: 20 MG, UNK
     Route: 048

REACTIONS (11)
  - Hypertension [Unknown]
  - Sinus disorder [Unknown]
  - Weight decreased [Unknown]
  - Migraine [Unknown]
  - Decreased appetite [Unknown]
  - Lethargy [Unknown]
  - Insomnia [Unknown]
  - Nausea [Unknown]
  - Paraesthesia [Unknown]
  - Inadequate analgesia [Unknown]
  - Depression [Unknown]
